FAERS Safety Report 9015511 (Version 2)
Quarter: 2013Q2

REPORT INFORMATION
  Report Type: Spontaneous
  Country: US (occurrence: US)
  Receive Date: 20130116
  Receipt Date: 20130403
  Transmission Date: 20140414
  Serious: Yes (Hospitalization)
  Sender: FDA-Public Use
  Company Number: US-JNJFOC-20130102338

PATIENT
  Sex: Female
  Weight: 79.83 kg

DRUGS (5)
  1. FENTANYL TRANSDERMAL SYSTEM [Suspect]
     Indication: PRODUCT USED FOR UNKNOWN INDICATION
     Route: 062
     Dates: end: 2002
  2. DURAGESIC [Suspect]
     Indication: PAIN
     Route: 062
     Dates: end: 2012
  3. MALLINCKRODT FENTANYL PATCHES [Suspect]
     Indication: PRODUCT USED FOR UNKNOWN INDICATION
     Route: 062
  4. MALLINCKRODT FENTANYL PATCHES [Suspect]
     Indication: PRODUCT USED FOR UNKNOWN INDICATION
     Route: 062
  5. UNSPECIFED MEDICATIONS [Concomitant]
     Route: 065

REACTIONS (3)
  - Developmental hip dysplasia [Recovered/Resolved]
  - Poor quality drug administered [Unknown]
  - Product quality issue [Unknown]
